FAERS Safety Report 9523705 (Version 3)
Quarter: 2013Q4

REPORT INFORMATION
  Report Type: Spontaneous
  Country: US (occurrence: US)
  Receive Date: 20130913
  Receipt Date: 20131112
  Transmission Date: 20140711
  Serious: Yes (Death)
  Sender: FDA-Public Use
  Company Number: US-JNJFOC-20130903770

PATIENT
  Sex: Female

DRUGS (4)
  1. MOTRIN INFANTS^ DROPS [Suspect]
     Indication: PYREXIA
     Route: 048
  2. MOTRIN INFANTS^ DROPS [Suspect]
     Indication: NASOPHARYNGITIS
     Route: 048
  3. NYQUIL [Suspect]
     Indication: PYREXIA
     Route: 065
  4. NYQUIL [Suspect]
     Indication: NASOPHARYNGITIS
     Route: 065

REACTIONS (3)
  - Death [Fatal]
  - Sudden infant death syndrome [Fatal]
  - Product quality issue [Fatal]
